FAERS Safety Report 4781368-3 (Version None)
Quarter: 2005Q3

REPORT INFORMATION
  Report Type: 
  Country: None (occurrence: None)
  Receive Date: 20050914
  Receipt Date: 20050112
  Transmission Date: 20060218
  Serious: Yes (Hospitalization)
  Sender: FDA-Public Use
  Company Number: 163-20785-05010221

PATIENT
  Age: 73 Year
  Sex: Male
  Weight: 77 kg

DRUGS (4)
  1. THALOMID [Suspect]
     Indication: NON-SMALL CELL LUNG CANCER
     Dosage: 200MG QD W/WEEKLY TITRATION OF 100MG UP TO 1000MG X21 DAYS, ORAL
     Route: 048
     Dates: start: 20040817, end: 20050105
  2. CARBOPLATIN [Suspect]
     Indication: NON-SMALL CELL LUNG CANCER
     Dosage: AUC=6 IV OVER 15-30MIN ON DAY 1 EVERY 21 DAYS X2, INTRAVENOUS
     Route: 042
     Dates: start: 20040817, end: 20041104
  3. PACLITAXEL [Suspect]
     Indication: NON-SMALL CELL LUNG CANCER
     Dosage: 225MG/M^2 OVER 3 HRS ON DAY 1 EVERY 21 DAYS X2, INTRAVENOUS
     Route: 042
     Dates: start: 20040817, end: 20041104
  4. RADIOTHERAPY [Suspect]
     Indication: NON-SMALL CELL LUNG CANCER
     Dosage: 60GY OVER 6 WEEKS BEGINNING BETWEEN DAYS 43-50

REACTIONS (1)
  - PULMONARY EMBOLISM [None]
